FAERS Safety Report 18535669 (Version 2)
Quarter: 2021Q4

REPORT INFORMATION
  Report Type: Spontaneous
  Country: US (occurrence: US)
  Receive Date: 20201123
  Receipt Date: 20211029
  Transmission Date: 20220303
  Serious: No
  Sender: FDA-Public Use
  Company Number: US-PFIZER INC-2020211759

PATIENT
  Age: 54 Year
  Sex: Male

DRUGS (3)
  1. XELJANZ [Suspect]
     Active Substance: TOFACITINIB CITRATE
     Indication: Psoriasis
     Dosage: 5 MG, 2X/DAY
     Route: 048
     Dates: start: 20200428
  2. TEMAZEPAM [Concomitant]
     Active Substance: TEMAZEPAM
     Dosage: UNK
  3. CLOBETASOL PROPIONATE [Concomitant]
     Active Substance: CLOBETASOL PROPIONATE
     Dosage: UNK

REACTIONS (5)
  - Product dose omission issue [Unknown]
  - Off label use [Unknown]
  - Product dose omission in error [Unknown]
  - Arthralgia [Unknown]
  - Pain [Unknown]
